FAERS Safety Report 4782912-2 (Version None)
Quarter: 2005Q3

REPORT INFORMATION
  Report Type: 
  Country: None (occurrence: None)
  Receive Date: 20050914
  Receipt Date: 20050525
  Transmission Date: 20060218
  Serious: Yes (Other)
  Sender: FDA-Public Use
  Company Number: 163-20785-05050373

PATIENT
  Age: 47 Year
  Sex: Male

DRUGS (3)
  1. THALOMID [Suspect]
     Indication: LICHEN MYXOEDEMATOSUS
     Dosage: 100 MG, DAILY, ORAL
     Route: 048
     Dates: start: 20050131, end: 20050529
  2. ALBUTEROL INHALER (SALBUTAMOL) (INHALANT) [Concomitant]
  3. LISINOPRIL [Concomitant]

REACTIONS (2)
  - DEEP VEIN THROMBOSIS [None]
  - GAIT DISTURBANCE [None]
